FAERS Safety Report 22859050 (Version 3)
Quarter: 2023Q4

REPORT INFORMATION
  Report Type: Report from Study
  Country: CA (occurrence: CA)
  Receive Date: 20230824
  Receipt Date: 20231006
  Transmission Date: 20240110
  Serious: Yes (Hospitalization, Other)
  Sender: FDA-Public Use
  Company Number: CA-LEO Pharma-351636

PATIENT
  Age: 88 Year
  Sex: Male

DRUGS (6)
  1. ADBRY [Suspect]
     Active Substance: TRALOKINUMAB-LDRM
     Indication: Dermatitis atopic
     Dosage: LOADING DOSE: 600MG SC,
     Route: 058
     Dates: start: 20230419
  2. ADBRY [Suspect]
     Active Substance: TRALOKINUMAB-LDRM
     Indication: Dermatitis atopic
     Dosage: LOADING DOSE: 600MG SC,
     Route: 058
     Dates: start: 20230419
  3. ADBRY [Suspect]
     Active Substance: TRALOKINUMAB-LDRM
     Indication: Dermatitis atopic
     Dosage: LOADING DOSE: 600MG SC,
     Route: 058
     Dates: start: 20230419
  4. ADBRY [Suspect]
     Active Substance: TRALOKINUMAB-LDRM
     Indication: Dermatitis atopic
     Dosage: MAINTENANCE DOSE: 300MG SC EVERY 2 WEEKS; FORMAT: 150 MG/ML PRE-FILLED SYRINGE; TREATMENT IS ONGOING
     Route: 058
  5. ADBRY [Suspect]
     Active Substance: TRALOKINUMAB-LDRM
     Indication: Dermatitis atopic
     Dosage: MAINTENANCE DOSE: 300MG SC EVERY 2 WEEKS; FORMAT: 150 MG/ML PRE-FILLED SYRINGE; TREATMENT IS ONGOING
     Route: 058
  6. ADBRY [Suspect]
     Active Substance: TRALOKINUMAB-LDRM
     Indication: Dermatitis atopic
     Dosage: MAINTENANCE DOSE: 300MG SC EVERY 2 WEEKS; FORMAT: 150 MG/ML PRE-FILLED SYRINGE; TREATMENT IS ONGOING
     Route: 058

REACTIONS (5)
  - Urinary tract infection [Recovered/Resolved]
  - Injection site swelling [Unknown]
  - Haemorrhage [Unknown]
  - Injection site pruritus [Unknown]
  - Influenza [Recovered/Resolved]

NARRATIVE: CASE EVENT DATE: 20230801
